FAERS Safety Report 18941451 (Version 1)
Quarter: 2021Q1

REPORT INFORMATION
  Report Type: Spontaneous
  Country: ES (occurrence: GB)
  Receive Date: 20210225
  Receipt Date: 20210225
  Transmission Date: 20210420
  Serious: Yes (Other)
  Sender: FDA-Public Use
  Company Number: GB-BRECKENRIDGE PHARMACEUTICAL, INC.-2107334

PATIENT
  Age: 49 Year
  Sex: Male

DRUGS (3)
  1. METRONIDAZOLE. [Concomitant]
     Active Substance: METRONIDAZOLE
  2. CLARITHROMYCIN. [Interacting]
     Active Substance: CLARITHROMYCIN
  3. OMEPRAZOLE. [Suspect]
     Active Substance: OMEPRAZOLE
     Indication: HELICOBACTER INFECTION

REACTIONS (5)
  - Cardiac flutter [None]
  - Electrocardiogram QT prolonged [None]
  - Arrhythmia [None]
  - Drug interaction [None]
  - Adverse event [None]
